FAERS Safety Report 17354745 (Version 1)
Quarter: 2020Q1

REPORT INFORMATION
  Report Type: Spontaneous
  Country: US (occurrence: US)
  Receive Date: 20200116
  Receipt Date: 20200116
  Transmission Date: 20200409
  Serious: Yes (Death)
  Sender: FDA-Public Use
  Company Number: None

PATIENT
  Age: 63 Year
  Sex: Female

DRUGS (1)
  1. NEULASTA [Suspect]
     Active Substance: PEGFILGRASTIM
     Indication: OVARIAN CANCER
     Dosage: ?          OTHER FREQUENCY:Q 21 DAYS;?
     Route: 058
     Dates: start: 20190806, end: 20190818

REACTIONS (1)
  - Death [None]

NARRATIVE: CASE EVENT DATE: 20190818
